FAERS Safety Report 7714969-0 (Version None)
Quarter: 2011Q3

REPORT INFORMATION
  Report Type: 
  Country: None (occurrence: None)
  Receive Date: 20110829
  Receipt Date: 20110606
  Transmission Date: 20111222
  Serious: No
  Sender: FDA-Public Use
  Company Number: US-ASTRAZENECA-2011SE34645

PATIENT
  Age: 67 Year
  Sex: Female

DRUGS (5)
  1. FLEXERIL [Concomitant]
  2. NEXIUM [Concomitant]
  3. PROZIR [Concomitant]
  4. XANAX [Concomitant]
  5. VIMOVO [Suspect]
     Indication: MYALGIA
     Route: 048
     Dates: start: 20110603

REACTIONS (6)
  - CLUSTER HEADACHE [None]
  - CHEST DISCOMFORT [None]
  - CONFUSIONAL STATE [None]
  - DIZZINESS [None]
  - OFF LABEL USE [None]
  - ANXIETY [None]
